FAERS Safety Report 16777803 (Version 1)
Quarter: 2019Q3

REPORT INFORMATION
  Report Type: Report from Study
  Country: US (occurrence: US)
  Receive Date: 20190905
  Receipt Date: 20190905
  Transmission Date: 20191005
  Serious: Yes (Other)
  Sender: FDA-Public Use
  Company Number: PHEH2019US036318

PATIENT
  Sex: Male

DRUGS (1)
  1. DUREZOL [Suspect]
     Active Substance: DIFLUPREDNATE
     Indication: CATARACT
     Route: 065

REACTIONS (3)
  - Intraocular pressure test abnormal [Unknown]
  - Eye haemorrhage [Unknown]
  - Optic nerve injury [Unknown]
